FAERS Safety Report 17293438 (Version 1)
Quarter: 2020Q1

REPORT INFORMATION
  Report Type: Spontaneous
  Country: US (occurrence: US)
  Receive Date: 20200121
  Receipt Date: 20200121
  Transmission Date: 20200409
  Serious: No
  Sender: FDA-Public Use
  Company Number: US-GLAXOSMITHKLINE-US2020009061

PATIENT
  Sex: Female

DRUGS (1)
  1. NUCALA [Suspect]
     Active Substance: MEPOLIZUMAB
     Indication: ASTHMA
     Dosage: 100 MG
     Route: 042

REACTIONS (4)
  - Headache [Recovering/Resolving]
  - Paraesthesia [Recovering/Resolving]
  - Pain in jaw [Recovering/Resolving]
  - Injection site reaction [Recovering/Resolving]
